APPROVED DRUG PRODUCT: OXYBUTYNIN CHLORIDE
Active Ingredient: OXYBUTYNIN CHLORIDE
Strength: 5MG/5ML
Dosage Form/Route: SYRUP;ORAL
Application: A075137 | Product #001
Applicant: PHARMACEUTICAL ASSOCIATES INC
Approved: Dec 18, 1998 | RLD: No | RS: No | Type: DISCN